FAERS Safety Report 25522436 (Version 1)
Quarter: 2025Q3

REPORT INFORMATION
  Report Type: Spontaneous
  Country: EU (occurrence: EU)
  Receive Date: 20250707
  Receipt Date: 20250707
  Transmission Date: 20251021
  Serious: No
  Sender: ALKEM
  Company Number: EU-ALKEM LABORATORIES LIMITED-FR-ALKEM-2025-05823

PATIENT
  Sex: Female

DRUGS (4)
  1. DRONABINOL [Suspect]
     Active Substance: DRONABINOL
     Indication: Neuralgia
     Dosage: 2 DOSAGE FORM, QD (MARINOL SOFT CAPSULE MOLLE) (INCLUDED 2 IN THE MORNING) (NO OTHER INFORMATION)
     Route: 065
  2. DRONABINOL [Suspect]
     Active Substance: DRONABINOL
     Dosage: 2.5 MILLIGRAM, TID (MARINOL SOFT CAPSULE MOLLE) (1 CAPSULE IN THE MORNING, 1 AT NOON AND 2 IN THE EV
     Route: 065
  3. QUTENZA [Concomitant]
     Active Substance: CAPSAICIN
     Indication: Neuropathy peripheral
     Route: 065
  4. LIDOCAINE [Concomitant]
     Active Substance: LIDOCAINE
     Indication: Neuropathy peripheral
     Dosage: UNK, QD (3/DAILY)
     Route: 065

REACTIONS (4)
  - Sedation [Unknown]
  - Product prescribing issue [Unknown]
  - Therapeutic response decreased [Unknown]
  - Off label use [Unknown]
